FAERS Safety Report 9859694 (Version 1)
Quarter: 2014Q1

REPORT INFORMATION
  Report Type: Spontaneous
  Country: GB (occurrence: GB)
  Receive Date: 20140131
  Receipt Date: 20140131
  Transmission Date: 20141002
  Serious: Yes (Hospitalization)
  Sender: FDA-Public Use
  Company Number: GB-GLAXOSMITHKLINE-B0963529A

PATIENT
  Age: 77 Year
  Sex: Male

DRUGS (1)
  1. REQUIP XL [Suspect]
     Indication: PARKINSON^S DISEASE
     Dosage: 8MG PER DAY
     Route: 048

REACTIONS (3)
  - Investigation [Not Recovered/Not Resolved]
  - Dysphagia [Not Recovered/Not Resolved]
  - Treatment noncompliance [Unknown]
